FAERS Safety Report 10425800 (Version 3)
Quarter: 2014Q3

REPORT INFORMATION
  Report Type: Spontaneous
  Country: JP (occurrence: JP)
  Receive Date: 20140903
  Receipt Date: 20140922
  Transmission Date: 20150326
  Serious: Yes (Death, Other)
  Sender: FDA-Public Use
  Company Number: JP-B.I. PHARMACEUTICALS,INC./RIDGEFIELD-2014-BI-40729NB

PATIENT
  Age: 86 Year
  Sex: Female

DRUGS (6)
  1. SYMMETREL [Concomitant]
     Active Substance: AMANTADINE HYDROCHLORIDE
     Indication: PRODUCT USED FOR UNKNOWN INDICATION
     Route: 048
  2. OLMETEC [Concomitant]
     Active Substance: OLMESARTAN MEDOXOMIL
     Indication: HYPERTENSION
     Route: 048
  3. JANUVIA [Concomitant]
     Active Substance: SITAGLIPTIN PHOSPHATE
     Indication: PRODUCT USED FOR UNKNOWN INDICATION
     Route: 065
  4. SEIBULE [Suspect]
     Active Substance: MIGLITOL
     Indication: DIABETES MELLITUS
     Dosage: 450 MG
     Route: 048
  5. TRAZENTA [Suspect]
     Active Substance: LINAGLIPTIN
     Indication: DIABETES MELLITUS
     Dosage: 5 MG
     Route: 048
  6. STARSIS [Suspect]
     Active Substance: NATEGLINIDE
     Indication: DIABETES MELLITUS
     Dosage: 1080 MG
     Route: 048

REACTIONS (8)
  - Hyperkalaemia [Not Recovered/Not Resolved]
  - Urinary tract infection [Not Recovered/Not Resolved]
  - Asthenia [Fatal]
  - Hypoglycaemia [Fatal]
  - Bronchitis [Not Recovered/Not Resolved]
  - Hypothermia [Not Recovered/Not Resolved]
  - Urine output decreased [Not Recovered/Not Resolved]
  - Pyrexia [Not Recovered/Not Resolved]
